FAERS Safety Report 9107867 (Version 2)
Quarter: 2013Q3

REPORT INFORMATION
  Report Type: Report from Study
  Country: UG (occurrence: UG)
  Receive Date: 20130221
  Receipt Date: 20130826
  Transmission Date: 20140515
  Serious: Yes (Death, Hospitalization)
  Sender: FDA-Public Use
  Company Number: UG-009507513-1103USA00468

PATIENT
  Age: 32 Year
  Sex: Male

DRUGS (8)
  1. RALTEGRAVIR POTASSIUM [Suspect]
     Indication: HIV INFECTION
     Dosage: UNK
     Dates: start: 20110111, end: 20110210
  2. LOPINAVIR (+) RITONAVIR [Suspect]
     Indication: HIV INFECTION
     Dates: start: 20110111, end: 20110210
  3. COTRIMAZOLE [Concomitant]
     Dosage: UNK
     Dates: start: 20091023, end: 20110210
  4. CIPROFLOXACIN [Concomitant]
     Dates: start: 20110210, end: 20110215
  5. IBUPROFEN [Concomitant]
     Dates: start: 20110210, end: 20110212
  6. SODIUM CHLORIDE [Concomitant]
     Dates: start: 20110210, end: 20110211
  7. DEXTROSE (+) ELECTROLYTES (UNSPECIFIED) [Concomitant]
     Dates: start: 20110210, end: 20110213
  8. ACETAMINOPHEN [Concomitant]
     Dates: start: 20110208, end: 20110210

REACTIONS (4)
  - Sepsis [Not Recovered/Not Resolved]
  - Bronchopneumonia [Not Recovered/Not Resolved]
  - Shock [Fatal]
  - Bronchopulmonary aspergillosis [Fatal]
